FAERS Safety Report 18595601 (Version 2)
Quarter: 2020Q4

REPORT INFORMATION
  Report Type: Spontaneous
  Country: JP (occurrence: JP)
  Receive Date: 20201209
  Receipt Date: 20201222
  Transmission Date: 20210114
  Serious: Yes (Hospitalization)
  Sender: FDA-Public Use
  Company Number: JP-ADVANZ PHARMA-202011010627

PATIENT

DRUGS (5)
  1. LEVODOPA [Concomitant]
     Active Substance: LEVODOPA
     Indication: PRODUCT USED FOR UNKNOWN INDICATION
     Dosage: UNK
  2. ENTACAPONE. [Concomitant]
     Active Substance: ENTACAPONE
     Indication: PRODUCT USED FOR UNKNOWN INDICATION
     Dosage: UNK
  3. AZILECT [Concomitant]
     Active Substance: RASAGILINE MESYLATE
     Indication: PRODUCT USED FOR UNKNOWN INDICATION
     Dosage: UNK
  4. ZONISAMIDE. [Suspect]
     Active Substance: ZONISAMIDE
     Indication: PARKINSON^S DISEASE
     Dosage: CAPSULE, DOSAGE AND FREQUENCY UNKNOWN
     Route: 048
  5. ROTIGOTINE [Concomitant]
     Active Substance: ROTIGOTINE
     Indication: PRODUCT USED FOR UNKNOWN INDICATION
     Dosage: UNK

REACTIONS (4)
  - Dyskinesia [Recovering/Resolving]
  - Somnolence [Recovering/Resolving]
  - Hallucination [Recovering/Resolving]
  - Delusion [Recovering/Resolving]
